FAERS Safety Report 6805283-6 (Version None)
Quarter: 2010Q2

REPORT INFORMATION
  Report Type: 
  Country: None (occurrence: None)
  Receive Date: 20100628
  Receipt Date: 20070921
  Transmission Date: 20101027
  Serious: Yes (Other)
  Sender: FDA-Public Use
  Company Number: US-PFIZER INC-2007077806

PATIENT
  Sex: Female
  Weight: 65.454 kg

DRUGS (2)
  1. GEODON [Suspect]
     Indication: HYPOMANIA
     Dosage: 120MG QD EVERYDAY TDD:120MG
     Dates: start: 20070801
  2. KLONOPIN [Concomitant]

REACTIONS (4)
  - DRUG INEFFECTIVE [None]
  - HYPOMANIA [None]
  - INSOMNIA [None]
  - TERMINAL INSOMNIA [None]
